FAERS Safety Report 11335351 (Version 1)
Quarter: 2015Q3

REPORT INFORMATION
  Report Type: Spontaneous
  Country: US (occurrence: US)
  Receive Date: 20150804
  Receipt Date: 20150804
  Transmission Date: 20151125
  Serious: Yes (Hospitalization, Other)
  Sender: FDA-Public Use
  Company Number: US-NOVOPROD-458585

PATIENT
  Age: 77 Year
  Sex: Female
  Weight: 78.5 kg

DRUGS (1)
  1. LEVEMIR [Suspect]
     Active Substance: INSULIN DETEMIR
     Indication: TYPE 2 DIABETES MELLITUS
     Dosage: 10 UNITS, QD
     Route: 058
     Dates: start: 20150724

REACTIONS (4)
  - Atrial fibrillation [Unknown]
  - Urinary incontinence [Unknown]
  - Nausea [Unknown]
  - Brain mass [Unknown]

NARRATIVE: CASE EVENT DATE: 20150724
